FAERS Safety Report 7986061 (Version 3)
Quarter: 2013Q3

REPORT INFORMATION
  Report Type: Report from Study
  Country: MX (occurrence: MX)
  Receive Date: 20110610
  Receipt Date: 20130710
  Transmission Date: 20140515
  Serious: Yes (Hospitalization)
  Sender: FDA-Public Use
  Company Number: PHHO2011MX09670

PATIENT
  Sex: 0

DRUGS (11)
  1. CERTICAN [Suspect]
     Indication: RENAL TRANSPLANT
     Dosage: 1.5 MG, BID
     Route: 048
     Dates: start: 20110518
  2. PROGRAF [Suspect]
     Indication: RENAL TRANSPLANT
     Dosage: 3 MG, BID
     Route: 048
     Dates: start: 20110518, end: 20110524
  3. PROGRAF [Suspect]
     Dosage: 2 MG, BID
     Route: 048
     Dates: start: 20110525
  4. MYFORTIC [Suspect]
     Indication: IMMUNOSUPPRESSION
     Dosage: 720 MG, BID
     Route: 048
     Dates: start: 20110223, end: 20110524
  5. MYFORTIC [Suspect]
     Dosage: 360 MG, BID
     Route: 048
     Dates: start: 20110525
  6. PREDNISONE [Concomitant]
     Indication: IMMUNOSUPPRESSION
     Dosage: 5 MG, QD
     Route: 048
     Dates: start: 20110507
  7. OMEPRAZOL [Concomitant]
     Indication: ANTACID THERAPY
     Dosage: 20 MG, QD
     Route: 048
     Dates: start: 20110302, end: 20110405
  8. VALGANCICLOVIR [Concomitant]
     Indication: ANTIVIRAL PROPHYLAXIS
     Dosage: 900 MG, QD
     Route: 048
     Dates: start: 20110223, end: 20110529
  9. AMOXICILLIN [Concomitant]
     Indication: INFECTION
     Dosage: 1.5 G, QD
     Route: 048
     Dates: start: 20110527
  10. CLINDAMYCIN [Concomitant]
     Indication: INFECTION
     Dosage: 600 MG, QD
     Route: 048
     Dates: start: 20110527
  11. NISTATIN [Concomitant]
     Indication: INFECTION
     Dosage: 10 ML, QD
     Route: 061

REACTIONS (1)
  - Mouth ulceration [Recovered/Resolved]
